FAERS Safety Report 23482135 (Version 1)
Quarter: 2024Q1

REPORT INFORMATION
  Report Type: Spontaneous
  Country: FR (occurrence: FR)
  Receive Date: 20240205
  Receipt Date: 20240205
  Transmission Date: 20240410
  Serious: Yes (Life-Threatening, Other)
  Sender: FDA-Public Use
  Company Number: None

PATIENT
  Age: 54 Year
  Sex: Female
  Weight: 101 kg

DRUGS (3)
  1. QUETIAPINE FUMARATE [Suspect]
     Active Substance: QUETIAPINE FUMARATE
     Indication: Product used for unknown indication
     Dosage: 1 PACKET
     Route: 048
     Dates: start: 20231108, end: 20231108
  2. OXAZEPAM [Suspect]
     Active Substance: OXAZEPAM
     Indication: Product used for unknown indication
     Dosage: 220 DOSAGE , 1 TOTAL
     Route: 048
     Dates: start: 20231108, end: 20231108
  3. CYAMEMAZINE [Suspect]
     Active Substance: CYAMEMAZINE
     Indication: Product used for unknown indication
     Dosage: 4 PACKETS
     Route: 048
     Dates: start: 20231108, end: 20231108

REACTIONS (6)
  - Hypoxia [Recovered/Resolved]
  - Pneumonia aspiration [Recovered/Resolved]
  - Bradypnoea [Recovered/Resolved]
  - Coma [Recovered/Resolved]
  - Poisoning deliberate [Unknown]
  - Hypothermia [Recovered/Resolved]

NARRATIVE: CASE EVENT DATE: 20231108
